FAERS Safety Report 20930890 (Version 3)
Quarter: 2022Q3

REPORT INFORMATION
  Report Type: Spontaneous
  Country: AU (occurrence: AU)
  Receive Date: 20220608
  Receipt Date: 20220919
  Transmission Date: 20221027
  Serious: Yes (Hospitalization, Other)
  Sender: FDA-Public Use
  Company Number: AU-AMGEN-AUSSP2022094303

PATIENT
  Age: 94 Year
  Sex: Female

DRUGS (1)
  1. PROLIA [Suspect]
     Active Substance: DENOSUMAB
     Indication: Osteoporosis
     Dosage: 60 MILLIGRAM, Q6MO
     Route: 058

REACTIONS (4)
  - Pelvic fracture [Unknown]
  - Rib fracture [Unknown]
  - Spinal compression fracture [Unknown]
  - Fall [Unknown]

NARRATIVE: CASE EVENT DATE: 20220101
